FAERS Safety Report 6882658-0 (Version None)
Quarter: 2010Q3

REPORT INFORMATION
  Report Type: 
  Country: None (occurrence: None)
  Receive Date: 20100729
  Receipt Date: 20100719
  Transmission Date: 20110219
  Serious: Yes (Hospitalization)
  Sender: FDA-Public Use
  Company Number: GB-WYE-G06195910

PATIENT
  Sex: Female
  Weight: 67.3 kg

DRUGS (6)
  1. RAPAMUNE [Suspect]
     Indication: PRODUCT USED FOR UNKNOWN INDICATION
     Route: 048
     Dates: start: 20100127, end: 20100525
  2. ATORVASTATIN [Concomitant]
     Dosage: 40MG, FREQUENCY UNSPECIFIED
     Route: 048
  3. FOSAMAX [Concomitant]
     Route: 048
  4. PENICILLIN NOS [Concomitant]
     Route: 048
  5. PREDNISOLONE [Concomitant]
     Route: 048
  6. EZETIMIBE [Concomitant]
     Route: 048

REACTIONS (4)
  - LUNG DISORDER [None]
  - PNEUMONITIS [None]
  - PULMONARY EMBOLISM [None]
  - WEIGHT DECREASED [None]
